FAERS Safety Report 5113054-4 (Version None)
Quarter: 2006Q3

REPORT INFORMATION
  Report Type: 
  Country: None (occurrence: None)
  Receive Date: 20060922
  Receipt Date: 20060809
  Transmission Date: 20061208
  Serious: Yes (Hospitalization)
  Sender: FDA-Public Use
  Company Number: DE-BOEHRINGER INGELHEIM GMBH, GERMANY-2006-DE-04295DE

PATIENT
  Sex: Female
  Weight: 59 kg

DRUGS (4)
  1. NEVIRAPINE [Suspect]
     Indication: HIV INFECTION
     Route: 048
     Dates: start: 19991005, end: 19991012
  2. ZIDOVUDINE [Concomitant]
     Indication: HIV INFECTION
     Route: 048
     Dates: start: 19991005, end: 19991012
  3. LAMIVUDINE [Concomitant]
     Indication: PROPHYLAXIS
     Dates: start: 19991005, end: 19991012
  4. LAMIVUDINE [Concomitant]

REACTIONS (5)
  - EYELID OEDEMA [None]
  - HEPATOTOXICITY [None]
  - PRURITUS [None]
  - RASH [None]
  - SKIN TOXICITY [None]
